FAERS Safety Report 16615708 (Version 1)
Quarter: 2019Q3

REPORT INFORMATION
  Report Type: Spontaneous
  Country: US (occurrence: US)
  Receive Date: 20190723
  Receipt Date: 20190723
  Transmission Date: 20191004
  Serious: No
  Sender: FDA-Public Use
  Company Number: US-ABBVIE-19P-163-2831424-00

PATIENT
  Sex: Female

DRUGS (3)
  1. ORILISSA [Suspect]
     Active Substance: ELAGOLIX SODIUM
     Indication: ENDOMETRIOSIS
     Route: 048
     Dates: start: 201905
  2. VITAMIN D [Concomitant]
     Active Substance: VITAMIN D NOS
     Indication: PROPHYLAXIS
  3. CALCIUM [Concomitant]
     Active Substance: CALCIUM
     Indication: PROPHYLAXIS

REACTIONS (7)
  - Abdominal pain upper [Unknown]
  - Endometriosis [Recovering/Resolving]
  - Malaise [Unknown]
  - Night sweats [Unknown]
  - Dizziness [Unknown]
  - Hot flush [Unknown]
  - Alopecia [Unknown]
